FAERS Safety Report 21933160 (Version 4)
Quarter: 2023Q1

REPORT INFORMATION
  Report Type: Report from Study
  Country: US (occurrence: US)
  Receive Date: 20230131
  Receipt Date: 20230309
  Transmission Date: 20230418
  Serious: Yes (Congenital Anomaly, Other)
  Sender: FDA-Public Use
  Company Number: US-GILEAD-2023-0614799

PATIENT
  Age: 1 Day
  Sex: Female
  Weight: 3.395 kg

DRUGS (7)
  1. BICTEGRAVIR [Suspect]
     Active Substance: BICTEGRAVIR
     Indication: HIV infection
     Dosage: 50 MG
     Route: 064
     Dates: start: 20220405, end: 20230111
  2. MINERALS\VITAMINS [Concomitant]
     Active Substance: MINERALS\VITAMINS
     Dosage: UNK
     Route: 064
     Dates: start: 20220606, end: 20230112
  3. GENTAMICIN [Concomitant]
     Active Substance: GENTAMICIN
     Dosage: UNK
     Route: 064
     Dates: start: 20230112, end: 20230112
  4. AMPICILLIN [Concomitant]
     Active Substance: AMPICILLIN
     Dosage: UNK
     Route: 064
     Dates: start: 20230112, end: 20230112
  5. LACTATED RINGERS SOLUTION [Concomitant]
     Active Substance: CALCIUM CHLORIDE\POTASSIUM CHLORIDE\SODIUM CHLORIDE\SODIUM LACTATE
     Dosage: UNK
     Route: 064
     Dates: start: 20230112, end: 20230112
  6. OXYTOCIN [Concomitant]
     Active Substance: OXYTOCIN
     Dosage: UNK
     Route: 064
     Dates: start: 20230111, end: 20230112
  7. BUPIVACAINE HYDROCHLORIDE\FENTANYL CITRATE [Concomitant]
     Active Substance: BUPIVACAINE HYDROCHLORIDE\FENTANYL CITRATE
     Dosage: UNK
     Route: 064
     Dates: start: 20230111, end: 20230111

REACTIONS (2)
  - Ventricular septal defect [Not Recovered/Not Resolved]
  - Foetal exposure during pregnancy [Recovered/Resolved]

NARRATIVE: CASE EVENT DATE: 20220405
